FAERS Safety Report 13353390 (Version 3)
Quarter: 2017Q2

REPORT INFORMATION
  Report Type: Spontaneous
  Country: IT (occurrence: IT)
  Receive Date: 20170321
  Receipt Date: 20170412
  Transmission Date: 20170830
  Serious: Yes (Other)
  Sender: FDA-Public Use
  Company Number: IT-ACCORD-049171

PATIENT
  Age: 24 Year
  Sex: Male
  Weight: 72 kg

DRUGS (3)
  1. SERTRALINE [Suspect]
     Active Substance: SERTRALINE HYDROCHLORIDE
     Indication: FAMILY STRESS
     Dosage: ALSO RECEIVED AT 100 MG DAILY FROM 09-JAN-2014 TO 01-JUN-2015,HALVED IT EVERY 4 WEEKS FROM JUN-2015
     Route: 048
     Dates: start: 20150601, end: 20151028
  2. BUSPIRONE [Concomitant]
     Active Substance: BUSPIRONE HYDROCHLORIDE
     Indication: ANXIETY
     Dates: start: 20140201, end: 20140501
  3. AIRCORT [Concomitant]
     Active Substance: BECLOMETHASONE DIPROPIONATE
     Indication: HYPERSENSITIVITY
     Route: 045

REACTIONS (4)
  - Loss of libido [Not Recovered/Not Resolved]
  - Erectile dysfunction [Not Recovered/Not Resolved]
  - Spontaneous penile erection [Not Recovered/Not Resolved]
  - Anhedonia [Not Recovered/Not Resolved]

NARRATIVE: CASE EVENT DATE: 20150609
